FAERS Safety Report 25707617 (Version 1)
Quarter: 2025Q3

REPORT INFORMATION
  Report Type: Spontaneous
  Country: EU (occurrence: EU)
  Receive Date: 20250820
  Receipt Date: 20250820
  Transmission Date: 20251021
  Serious: Yes (Other)
  Sender: MYLAN
  Company Number: EU-GRUNENTHAL-2025-112099

PATIENT
  Age: 55 Year
  Sex: Male

DRUGS (2)
  1. TRAMADOL [Suspect]
     Active Substance: TRAMADOL
     Indication: Pain
  2. DIAZEPAM [Concomitant]
     Active Substance: DIAZEPAM

REACTIONS (5)
  - Drug dependence [Unknown]
  - Apathy [Unknown]
  - Euphoric mood [Unknown]
  - Withdrawal syndrome [Unknown]
  - Prescription drug used without a prescription [Unknown]
